FAERS Safety Report 5579847-4 (Version None)
Quarter: 2008Q1

REPORT INFORMATION
  Report Type: 
  Country: None (occurrence: None)
  Receive Date: 20080102
  Receipt Date: 20071221
  Transmission Date: 20080703
  Serious: Yes (Other)
  Sender: FDA-Public Use
  Company Number: US-PFIZER INC-2007107426

PATIENT
  Sex: Female
  Weight: 122 kg

DRUGS (13)
  1. ZOLOFT [Suspect]
     Indication: DEPRESSION
  2. CARVEDILOL [Suspect]
  3. CLARITIN [Suspect]
  4. ACETYLSALICYLIC ACID SRT [Concomitant]
  5. GABAPENTIN [Concomitant]
  6. PULMICORT [Concomitant]
  7. ATROVENT [Concomitant]
  8. COMBIVENT [Concomitant]
  9. MONTELUKAST SODIUM [Concomitant]
  10. ULTRACET [Concomitant]
  11. FLOVENT [Concomitant]
  12. DESYREL [Concomitant]
  13. LEXAPRO [Concomitant]

REACTIONS (6)
  - DIABETES MELLITUS [None]
  - FATIGUE [None]
  - HAEMATOCRIT DECREASED [None]
  - HYPERTENSION [None]
  - PERIPHERAL VASCULAR DISORDER [None]
  - TREATMENT NONCOMPLIANCE [None]
